FAERS Safety Report 9354720 (Version 2)
Quarter: 2013Q3

REPORT INFORMATION
  Report Type: Spontaneous
  Country: US (occurrence: US)
  Receive Date: 20130619
  Receipt Date: 20130723
  Transmission Date: 20140515
  Serious: Yes (Hospitalization, Other)
  Sender: FDA-Public Use
  Company Number: US-AMGEN-USASP2013042233

PATIENT
  Age: 57 Year
  Sex: Male

DRUGS (4)
  1. EPOGEN [Suspect]
     Indication: RENAL FAILURE CHRONIC
     Dosage: 28000 UNIT, 3 TIMES/WK
     Route: 042
     Dates: start: 20130211
  2. EPOGEN [Suspect]
     Indication: MYELODYSPLASTIC SYNDROME
  3. EPOGEN [Suspect]
     Indication: HYPERGAMMAGLOBULINAEMIA BENIGN MONOCLONAL
  4. PROCRIT [Suspect]
     Indication: RENAL FAILURE CHRONIC
     Dosage: 40000 UNIT, UNK
     Route: 065

REACTIONS (4)
  - Haemoglobin decreased [Unknown]
  - Ascites [Unknown]
  - Pleural effusion [Unknown]
  - Therapeutic response decreased [Unknown]
